FAERS Safety Report 15255539 (Version 3)
Quarter: 2018Q3

REPORT INFORMATION
  Report Type: Report from Study
  Country: US (occurrence: US)
  Receive Date: 20180808
  Receipt Date: 20180827
  Transmission Date: 20181010
  Serious: Yes (Other)
  Sender: FDA-Public Use
  Company Number: US-GILEAD-2018-0354059

PATIENT
  Age: 69 Year
  Sex: Female
  Weight: 78.91 kg

DRUGS (6)
  1. AMBRISENTAN [Suspect]
     Active Substance: AMBRISENTAN
     Indication: PULMONARY HYPERTENSION
     Dosage: 10 MG, QD
     Route: 065
     Dates: start: 20110406
  2. ROBAXIN [Concomitant]
     Active Substance: METHOCARBAMOL
  3. LASIX [Concomitant]
     Active Substance: FUROSEMIDE
  4. BRILINTA [Concomitant]
     Active Substance: TICAGRELOR
  5. ALLOPURINOL. [Concomitant]
     Active Substance: ALLOPURINOL
  6. MULTIVITAMINS W/MINERALS [Concomitant]
     Active Substance: MINERALS\VITAMINS

REACTIONS (5)
  - Dialysis [Unknown]
  - Stent placement [Unknown]
  - Product use issue [Unknown]
  - Ill-defined disorder [Unknown]
  - Drug dose omission [Unknown]

NARRATIVE: CASE EVENT DATE: 201807
